FAERS Safety Report 8908227 (Version 2)
Quarter: 2013Q1

REPORT INFORMATION
  Report Type: Report from Study
  Country: PH (occurrence: PH)
  Receive Date: 20121114
  Receipt Date: 20130114
  Transmission Date: 20140127
  Serious: Yes (Hospitalization)
  Sender: FDA-Public Use
  Company Number: PHHY2012PH102589

PATIENT
  Age: 36 Year
  Sex: Female
  Weight: 53 kg

DRUGS (5)
  1. VAA489A [Suspect]
     Indication: HYPERTENSION
     Dosage: 1 DF (VAL/AML/HCT: 160/5/25MG) DAILY
     Route: 048
     Dates: start: 20120918, end: 20121008
  2. ATORVASTATIN [Concomitant]
     Indication: DYSLIPIDAEMIA
     Dosage: 40 MG, UNK
     Dates: start: 20120116
  3. ATORVASTATIN [Concomitant]
     Dosage: 20 MG, UNK
  4. CLOPIDOGREL [Concomitant]
     Indication: ISCHAEMIA
     Dosage: 75 MG, UNK
     Dates: start: 20120116
  5. TRIMETAZIDINE [Concomitant]
     Indication: CHEST PAIN
     Dosage: 35 MG, UNK
     Dates: start: 20111229

REACTIONS (2)
  - Palpitations [Recovered/Resolved]
  - Sinus tachycardia [Unknown]
